FAERS Safety Report 8137886-3 (Version None)
Quarter: 2012Q1

REPORT INFORMATION
  Report Type: 
  Country: None (occurrence: None)
  Receive Date: 20120215
  Receipt Date: 20120207
  Transmission Date: 20120608
  Serious: Yes (Hospitalization, Other)
  Sender: FDA-Public Use
  Company Number: US-BAYER-2011-037250

PATIENT
  Age: 26 Year
  Sex: Female
  Weight: 98 kg

DRUGS (11)
  1. LEVOTHYROXINE SODIUM [Concomitant]
  2. PEPCID [Concomitant]
  3. PHENERGAN [Concomitant]
  4. ZANTAC [Concomitant]
     Indication: DYSPEPSIA
     Dosage: UNK UNK, PRN
     Route: 048
     Dates: start: 20080101, end: 20090101
  5. MAGNESIUM HYDROXIDE TAB [Concomitant]
     Indication: DYSPEPSIA
     Dosage: UNK UNK, PRN
     Route: 048
     Dates: start: 20080101, end: 20090101
  6. VITAMIN AND MINERAL PRENATAL SUPPLEMENT W/ FOLIC ACID CAP [Concomitant]
     Indication: VITAMIN SUPPLEMENTATION
     Dosage: UNK UNK, QD
     Route: 048
     Dates: start: 20070101
  7. YAZ [Suspect]
  8. PREVACID [Concomitant]
     Indication: DYSPEPSIA
     Dosage: 30 MG, UNK
     Route: 048
     Dates: start: 20040101
  9. CALCIUM CARBONATE [Concomitant]
     Indication: DYSPEPSIA
     Dosage: UNK UNK, PRN
     Route: 048
     Dates: start: 20080101
  10. YASMIN [Suspect]
     Dosage: UNK
     Dates: start: 20040101, end: 20090101
  11. SYNTHROID [Concomitant]
     Indication: HYPOTHYROIDISM
     Dosage: 125 MG, UNK
     Route: 048
     Dates: start: 20090801

REACTIONS (5)
  - ANHEDONIA [None]
  - ABDOMINAL PAIN [None]
  - CHOLECYSTITIS CHRONIC [None]
  - ANXIETY [None]
  - GALLBLADDER DISORDER [None]
